FAERS Safety Report 16570243 (Version 1)
Quarter: 2019Q3

REPORT INFORMATION
  Report Type: Spontaneous
  Country: US (occurrence: US)
  Receive Date: 20190531
  Receipt Date: 20190531
  Transmission Date: 20191004
  Serious: No
  Sender: FDA-Public Use
  Company Number: None

PATIENT
  Age: 0 Day
  Sex: Female

DRUGS (1)
  1. VITAMIN K [Suspect]
     Active Substance: PHYTONADIONE
     Dates: start: 20170703

REACTIONS (2)
  - Cyanosis [None]
  - Respiratory arrest [None]

NARRATIVE: CASE EVENT DATE: 20170703
